FAERS Safety Report 9999315 (Version 3)
Quarter: 2014Q2

REPORT INFORMATION
  Report Type: Report from Study
  Country: ES (occurrence: ES)
  Receive Date: 20140312
  Receipt Date: 20140606
  Transmission Date: 20141212
  Serious: Yes (Life-Threatening, Hospitalization, Other)
  Sender: FDA-Public Use
  Company Number: ES-ASTRAZENECA-2014SE16912

PATIENT
  Age: 31177 Day
  Sex: Female

DRUGS (13)
  1. AZD6140 [Suspect]
     Indication: ISCHAEMIC HEART DISEASE PROPHYLAXIS
     Route: 048
     Dates: start: 20140306, end: 20140306
  2. AZD6140 [Suspect]
     Indication: ISCHAEMIC HEART DISEASE PROPHYLAXIS
     Route: 048
     Dates: start: 20140307
  3. TRIFLUSAL [Concomitant]
     Dates: end: 20140306
  4. SIMVASTATINE [Concomitant]
     Dates: end: 20140306
  5. OLMETEC PLUS [Concomitant]
     Dates: end: 20140310
  6. METHOTREXATE [Concomitant]
     Dates: end: 20140310
  7. IBANDRONIC ACID [Concomitant]
     Dates: end: 20140310
  8. CALCIUM CARBONATE [Concomitant]
     Dates: end: 20140310
  9. CHOLECALCIFEROL [Concomitant]
     Dates: end: 20140310
  10. OMEPRAZOLE [Concomitant]
     Dates: end: 20140310
  11. FOLIC ACID [Concomitant]
     Dates: end: 20140310
  12. PARACETAMOL [Concomitant]
     Dates: end: 20140310
  13. ATORVASTATIN [Concomitant]
     Dates: start: 20140306, end: 20140310

REACTIONS (1)
  - Respiratory failure [Recovered/Resolved]
